FAERS Safety Report 19118158 (Version 1)
Quarter: 2021Q2

REPORT INFORMATION
  Report Type: Spontaneous
  Country: US (occurrence: US)
  Receive Date: 20210409
  Receipt Date: 20210409
  Transmission Date: 20210717
  Serious: No
  Sender: FDA-Public Use
  Company Number: US-LANNETT COMPANY, INC.-US-2020LAN000325

PATIENT
  Age: 71 Year
  Sex: Female

DRUGS (1)
  1. BUTALBITAL, ACETAMINOPHEN, AND CAFFEINE [Suspect]
     Active Substance: ACETAMINOPHEN\BUTALBITAL\CAFFEINE
     Indication: MIGRAINE
     Dosage: 1 CAPSULE, BID, AS NEEDED
     Route: 048
     Dates: start: 20201204, end: 202012

REACTIONS (6)
  - Abdominal distension [Recovering/Resolving]
  - Malaise [Unknown]
  - Pain [Not Recovered/Not Resolved]
  - Product substitution issue [Unknown]
  - Drug ineffective [Unknown]
  - Product dispensing error [Unknown]

NARRATIVE: CASE EVENT DATE: 202012
